FAERS Safety Report 5945596-3 (Version None)
Quarter: 2008Q4

REPORT INFORMATION
  Report Type: 
  Country: None (occurrence: None)
  Receive Date: 20081107
  Receipt Date: 20081028
  Transmission Date: 20090506
  Serious: Yes (Hospitalization)
  Sender: FDA-Public Use
  Company Number: FR-PFIZER INC-2008091277

PATIENT
  Age: 76 Year
  Sex: Male

DRUGS (3)
  1. XANAX [Suspect]
  2. ZOLPIDEM [Suspect]
  3. ZOLOFT [Concomitant]

REACTIONS (4)
  - AGGRESSION [None]
  - AGITATION [None]
  - HALLUCINATION [None]
  - STUPOR [None]
